FAERS Safety Report 4647234-9 (Version None)
Quarter: 2005Q2

REPORT INFORMATION
  Report Type: 
  Country: None (occurrence: None)
  Receive Date: 20050426
  Receipt Date: 20050420
  Transmission Date: 20051028
  Serious: Yes (Other)
  Sender: FDA-Public Use
  Company Number: MED000101

PATIENT
  Sex: Female

DRUGS (1)
  1. VANCOCIN HCL [Suspect]
     Dates: start: 20050222

REACTIONS (3)
  - DEAFNESS [None]
  - STOMACH DISCOMFORT [None]
  - VERTIGO [None]
